FAERS Safety Report 8221699-8 (Version None)
Quarter: 2012Q1

REPORT INFORMATION
  Report Type: 
  Country: None (occurrence: None)
  Receive Date: 20120316
  Receipt Date: 20120302
  Transmission Date: 20120608
  Serious: Yes (Death, Life-Threatening, Other)
  Sender: FDA-Public Use
  Company Number: US-2011-10050

PATIENT
  Age: 66 Year
  Sex: Male

DRUGS (40)
  1. ASPIRIN [Concomitant]
  2. MESNA [Concomitant]
  3. POTASSIUM CHLORIDE [Concomitant]
  4. SODIUM CHLORIDE [Concomitant]
  5. VERAPAMIL [Concomitant]
  6. PROCHLORPERAZINE MALEATE [Concomitant]
  7. BISACODYL [Concomitant]
  8. LEVETIRACETAM [Concomitant]
  9. CYCLOPHOSPHAMIDE [Concomitant]
  10. INSULIN GLARGINE (INSULIN GLARGINE) [Concomitant]
  11. HYDROCORTISONE (HYDROCOTISONE) [Concomitant]
  12. TEMAZEPAM [Concomitant]
  13. NIACIN [Concomitant]
  14. ASPIRIN [Concomitant]
  15. SIMVASTATIN [Concomitant]
  16. CIPROFLAOXACIN (CIPROFLOAXACIN) [Concomitant]
  17. DEXAMETHASONE [Concomitant]
  18. MAGNESIUM HYDROXIE (MAGNESIUM HYDROXIDE) [Concomitant]
  19. LISINOPRIL /00894002/ (LISINOPRIL DIHYDRATE) [Concomitant]
  20. URSODIOL [Concomitant]
  21. METFORMIN HYDROCHLORIDE [Concomitant]
  22. DIPHENHYDRAMINE HCL [Concomitant]
  23. ETOPOSIDE [Concomitant]
  24. MIRALAX [Concomitant]
  25. OMEPRAZOLE [Concomitant]
  26. SENNA ALEXANDRIA EXTRACT W/DOCUSATE SODIUM (DOCUSATE SODIUM, SENNOSIDE [Concomitant]
  27. LORAZEPAM [Concomitant]
  28. ALTEPLASE (ALTEPLASE) [Concomitant]
  29. BUSULFAN [Suspect]
     Indication: LYMPHOMA
     Dosage: 65 MG MILLIGRAM(S), DAILY DOSE, INTRAVENOUS 370 MG MILLIGRAM(S), DAILY DOSE, INTRAVENOUS
     Route: 042
     Dates: start: 20110113, end: 20110113
  30. BUSULFAN [Suspect]
     Indication: LYMPHOMA
     Dosage: 65 MG MILLIGRAM(S), DAILY DOSE, INTRAVENOUS 370 MG MILLIGRAM(S), DAILY DOSE, INTRAVENOUS
     Route: 042
     Dates: start: 20110119, end: 20110122
  31. GLIPIZIDE [Concomitant]
  32. ONDANSETRON [Concomitant]
  33. TRIMETHOPRIM [Concomitant]
  34. OXYCODONE HCL [Concomitant]
  35. HYDROCHOROTHIAZIDE (HYDROCHLOROTHIAZIDE) [Concomitant]
  36. BENAZEPRIL HYDROCHLORIDE [Concomitant]
  37. INSULIN ASPART (INSULIN ASPART) [Concomitant]
  38. ALLOPURINOL [Concomitant]
  39. FENTANYL CITRATE [Concomitant]
  40. BIFIDOBACTERIUM INFANTIS (BIVIDOBACTERIUM INFANTIS) [Concomitant]

REACTIONS (11)
  - RESPIRATORY FAILURE [None]
  - ASPIRATION [None]
  - FEBRILE NEUTROPENIA [None]
  - VOMITING [None]
  - PULSELESS ELECTRICAL ACTIVITY [None]
  - HYPOXIC-ISCHAEMIC ENCEPHALOPATHY [None]
  - HYPOALBUMINAEMIA [None]
  - SEPSIS [None]
  - PLATELET COUNT DECREASED [None]
  - CARDIO-RESPIRATORY ARREST [None]
  - MUCOSAL INFLAMMATION [None]
